FAERS Safety Report 7296797-6 (Version None)
Quarter: 2011Q1

REPORT INFORMATION
  Report Type: 
  Country: None (occurrence: None)
  Receive Date: 20110216
  Receipt Date: 20110210
  Transmission Date: 20110831
  Serious: Yes (Other)
  Sender: FDA-Public Use
  Company Number: B0699903A

PATIENT
  Age: 84 Year
  Sex: Female

DRUGS (1)
  1. PAXIL [Suspect]
     Route: 048

REACTIONS (5)
  - AFFECT LABILITY [None]
  - TEARFULNESS [None]
  - DRUG WITHDRAWAL SYNDROME [None]
  - TREMOR [None]
  - LIVER FUNCTION TEST ABNORMAL [None]
